FAERS Safety Report 10383863 (Version 3)
Quarter: 2014Q4

REPORT INFORMATION
  Report Type: Spontaneous
  Country: US (occurrence: US)
  Receive Date: 20140814
  Receipt Date: 20141107
  Transmission Date: 20150528
  Serious: Yes (Life-Threatening, Other)
  Sender: FDA-Public Use
  Company Number: US-009507513-1408USA006219

PATIENT
  Age: 33 Year
  Sex: Female
  Weight: 53 kg

DRUGS (1)
  1. NEXPLANON [Suspect]
     Active Substance: ETONOGESTREL
     Indication: CONTRACEPTION
     Dosage: NEXPLANON ROD, IN ARM
     Route: 059
     Dates: start: 20140722, end: 20140804

REACTIONS (2)
  - Pulmonary embolism [Recovered/Resolved]
  - Drug administration error [Unknown]

NARRATIVE: CASE EVENT DATE: 20140729
